FAERS Safety Report 8954961 (Version 1)
Quarter: 2012Q4

REPORT INFORMATION
  Report Type: Spontaneous
  Country: DK (occurrence: None)
  Receive Date: 20121130
  Receipt Date: 20121130
  Transmission Date: 20130627
  Serious: Yes (Other)
  Sender: FDA-Public Use
  Company Number: 2012MA013649

PATIENT
  Age: 70 Year
  Sex: Female

DRUGS (8)
  1. CARBAMAZEPINE [Suspect]
  2. IBUPROFEN [Suspect]
  3. ISOSORBIDE MONONITRATE [Suspect]
  4. METFORMIN HYDROCHLORIDE [Suspect]
  5. LANSOPRAZOLE (LANSOPRAZOLE) [Suspect]
  6. LOPERAMIDE [Suspect]
  7. ATORVASTATIN [Suspect]
  8. GLYCERYL 1,2-DINITRATE [Suspect]
     Route: 060

REACTIONS (1)
  - Colitis microscopic [None]
